FAERS Safety Report 9125890 (Version 1)
Quarter: 2013Q1

REPORT INFORMATION
  Report Type: Spontaneous
  Country: DE (occurrence: DE)
  Receive Date: 20130117
  Receipt Date: 20130117
  Transmission Date: 20140127
  Serious: Yes (Other)
  Sender: FDA-Public Use
  Company Number: DE-PFIZER INC-2013017431

PATIENT
  Age: 72 Year
  Sex: Male

DRUGS (3)
  1. LYRICA [Suspect]
     Indication: HERPES ZOSTER
     Dosage: 50 MG, 1X/DAY
     Dates: start: 20121221, end: 20121222
  2. LYRICA [Suspect]
     Dosage: 50 MG, 2X/DAY
     Dates: start: 20121223, end: 20121223
  3. LYRICA [Suspect]
     Dosage: 50 MG, 3X/DAY
     Dates: start: 20121224, end: 20121231

REACTIONS (2)
  - Coagulopathy [Unknown]
  - Off label use [Recovered/Resolved]
